FAERS Safety Report 9478988 (Version 2)
Quarter: 2013Q3

REPORT INFORMATION
  Report Type: Spontaneous
  Country: US (occurrence: US)
  Receive Date: 20130827
  Receipt Date: 20130827
  Transmission Date: 20140515
  Serious: Yes (Other)
  Sender: FDA-Public Use
  Company Number: US-JNJFOC-20120202750

PATIENT
  Age: 44 Year
  Sex: Female
  Weight: 63.5 kg

DRUGS (17)
  1. REMICADE [Suspect]
     Indication: RHEUMATOID ARTHRITIS
     Route: 042
     Dates: start: 20120125
  2. REMICADE [Suspect]
     Indication: RHEUMATOID ARTHRITIS
     Dosage: 4TH INFUSION
     Route: 042
     Dates: start: 20111201
  3. REMICADE [Suspect]
     Indication: RHEUMATOID ARTHRITIS
     Route: 042
     Dates: start: 20111103
  4. REMICADE [Suspect]
     Indication: RHEUMATOID ARTHRITIS
     Route: 042
     Dates: start: 2012
  5. BENADRYL [Concomitant]
     Indication: PREMEDICATION
     Dosage: 100 CC
     Route: 042
     Dates: start: 20120125
  6. PREDNISONE [Concomitant]
     Indication: ARTHRITIS
     Route: 048
  7. METHYLPREDNISOLONE [Concomitant]
     Indication: PREMEDICATION
     Route: 042
     Dates: start: 20120125
  8. MULTIVITAMINS [Concomitant]
     Indication: PROPHYLAXIS
     Route: 065
  9. IBUPROFEN [Concomitant]
     Indication: PAIN
     Route: 065
  10. IRON [Concomitant]
     Indication: BLOOD IRON DECREASED
     Route: 065
  11. VALIUM [Concomitant]
     Indication: DENTAL CARE
     Route: 065
  12. BIOTIN [Concomitant]
     Route: 065
  13. VITAMIN B COMPLEX WITH C [Concomitant]
     Route: 065
  14. COLACE [Concomitant]
     Route: 065
  15. VICODIN [Concomitant]
     Dosage: 500MG-5MG TAB 1-2 TABLETS
     Route: 065
  16. CALCIUM AND VITAMIN D [Concomitant]
     Route: 065
  17. VITAMIN D3 [Concomitant]
     Route: 065

REACTIONS (9)
  - Chest discomfort [Recovered/Resolved]
  - Rash [Recovered/Resolved]
  - Chest pain [Recovered/Resolved]
  - Infusion related reaction [Recovered/Resolved]
  - Throat tightness [Recovered/Resolved]
  - Pruritus [Recovered/Resolved]
  - Abdominal discomfort [Recovered/Resolved]
  - Urticaria [Recovered/Resolved]
  - Drug hypersensitivity [Recovered/Resolved]
